FAERS Safety Report 7602090-1 (Version None)
Quarter: 2011Q3

REPORT INFORMATION
  Report Type: 
  Country: None (occurrence: None)
  Receive Date: 20110711
  Receipt Date: 20110628
  Transmission Date: 20111222
  Serious: Yes (Hospitalization)
  Sender: FDA-Public Use
  Company Number: GB-GENENTECH-313183

PATIENT
  Age: 40 Year
  Sex: Female
  Weight: 101 kg

DRUGS (10)
  1. FOLIC ACID [Concomitant]
     Dosage: 5 MG, QAM
     Route: 048
  2. SIMVASTATIN [Concomitant]
     Dosage: 20 MG, QAM
     Route: 048
  3. RITUXIMAB [Suspect]
     Indication: PRODUCT USED FOR UNKNOWN INDICATION
     Dosage: 1 G, UNK
     Route: 042
     Dates: start: 20080701
  4. RITUXIMAB [Suspect]
     Dosage: UNK
     Route: 042
     Dates: start: 20080801
  5. ACYCLOVIR [Concomitant]
     Dosage: 200 MG, QAM
     Route: 048
  6. MYCOPHENOLATE MEFETIL [Suspect]
     Indication: PRODUCT USED FOR UNKNOWN INDICATION
     Dosage: 1 G, BID
     Route: 048
  7. CALCIUM CARBONATE [Concomitant]
     Dosage: CALCICHEW D3
     Route: 048
  8. PREDNISOLONE [Suspect]
     Indication: PRODUCT USED FOR UNKNOWN INDICATION
     Dosage: 30 MG, QAM
     Route: 048
  9. CITALOPRAM [Concomitant]
     Dosage: 20 MG, QAM
  10. LANSOPRAZOLE [Concomitant]
     Dosage: 30 MG, BID
     Route: 048

REACTIONS (1)
  - PNEUMOCYSTIS JIROVECI INFECTION [None]
